FAERS Safety Report 8369591-2 (Version None)
Quarter: 2012Q2

REPORT INFORMATION
  Report Type: 
  Country: None (occurrence: None)
  Receive Date: 20120518
  Receipt Date: 20120516
  Transmission Date: 20120825
  Serious: Yes (Death)
  Sender: FDA-Public Use
  Company Number: PHHY2012NL038043

PATIENT
  Sex: Male
  Weight: 97 kg

DRUGS (5)
  1. ZOMETA [Suspect]
     Dosage: 4MG/100ML, ONCE PER 28 DAYS
     Dates: start: 20110203
  2. ZOMETA [Suspect]
     Dosage: 4MG/100ML, ONCE PER 28 DAYS
     Dates: start: 20120321
  3. DEXAMETHASONE SODIUM PHOSPHATE [Suspect]
  4. ZOMETA [Suspect]
     Dosage: 4MG/100ML, ONCE PER 28 DAYS
     Dates: start: 20120416
  5. ZOMETA [Suspect]
     Indication: PROSTATE CANCER METASTATIC
     Dosage: 4MG/100ML, ONCE PER 28 DAYS
     Dates: start: 20101130

REACTIONS (6)
  - NEOPLASM MALIGNANT [None]
  - PROSTATIC SPECIFIC ANTIGEN INCREASED [None]
  - MALAISE [None]
  - HAEMOGLOBIN DECREASED [None]
  - NEOPLASM PROGRESSION [None]
  - BLOOD ALKALINE PHOSPHATASE [None]
